FAERS Safety Report 25013638 (Version 6)
Quarter: 2025Q2

REPORT INFORMATION
  Report Type: Spontaneous
  Country: US (occurrence: US)
  Receive Date: 20250226
  Receipt Date: 20250505
  Transmission Date: 20250717
  Serious: No
  Sender: PFIZER
  Company Number: US-PFIZER INC-202500042089

PATIENT
  Age: 14 Year
  Sex: Male
  Weight: 72.57 kg

DRUGS (4)
  1. GENOTROPIN [Suspect]
     Active Substance: SOMATROPIN
     Indication: Growth hormone deficiency
     Dosage: 3.2 MG, 1X/DAY AT NIGHT
     Route: 058
     Dates: start: 20240802
  2. LEVOCETIRIZINE [Concomitant]
     Active Substance: LEVOCETIRIZINE
     Indication: Seasonal allergy
     Dosage: THINKS IT IS 10MG, BID BUT THINKS IT IS OFTEN JUST AT NIGHT
     Route: 048
     Dates: start: 202406
  3. LEVOCETIRIZINE [Concomitant]
     Active Substance: LEVOCETIRIZINE
     Dosage: 5 MG, DAILY
  4. AZELASTINE [Concomitant]
     Active Substance: AZELASTINE
     Indication: Seasonal allergy
     Dosage: 0.01 %, 2 SPRAYS EACH NOSTRIL DAILY

REACTIONS (6)
  - Illness [Recovered/Resolved]
  - Viral upper respiratory tract infection [Recovered/Resolved]
  - Rhinorrhoea [Recovered/Resolved]
  - Device leakage [Recovered/Resolved]
  - Liquid product physical issue [Recovered/Resolved]
  - Drug dose omission by device [Recovered/Resolved]

NARRATIVE: CASE EVENT DATE: 20250201
